FAERS Safety Report 8348928-4 (Version None)
Quarter: 2012Q2

REPORT INFORMATION
  Report Type: 
  Country: None (occurrence: None)
  Receive Date: 20120510
  Receipt Date: 20120426
  Transmission Date: 20120825
  Serious: Yes (Death)
  Sender: FDA-Public Use
  Company Number: US-PAR PHARMACEUTICAL, INC-2012SCPR004342

PATIENT

DRUGS (6)
  1. PLACEBO [Suspect]
     Indication: OSTEOARTHRITIS
     Dosage: 4 G, QID
     Route: 061
     Dates: start: 20120209, end: 20120307
  2. FISH OIL [Concomitant]
     Indication: SUPPLEMENTATION THERAPY
     Dosage: 1200 MG, QD
     Route: 048
     Dates: start: 20100101
  3. ACETAMINOPHEN [Concomitant]
     Dosage: 650 MG, QD, PRN
     Route: 048
     Dates: start: 20120208, end: 20120226
  4. AMLODIPINE [Concomitant]
     Indication: MIGRAINE
     Dosage: 5 MG, QD
     Route: 048
     Dates: start: 19890101
  5. DICLOFENAC SODIUM [Suspect]
     Indication: OSTEOARTHRITIS
     Dosage: 4 G, QID
     Route: 061
     Dates: start: 20120209, end: 20120307
  6. ACETAMINOPHEN [Concomitant]
     Indication: OSTEOARTHRITIS
     Dosage: 500 MG, BID
     Route: 048
     Dates: start: 20090101

REACTIONS (1)
  - DEATH [None]
